FAERS Safety Report 9275127 (Version 1)
Quarter: 2013Q2

REPORT INFORMATION
  Report Type: Spontaneous
  Country: US (occurrence: US)
  Receive Date: 20130507
  Receipt Date: 20130507
  Transmission Date: 20140414
  Serious: Yes (Other)
  Sender: FDA-Public Use
  Company Number: US-SANOFI-AVENTIS-2013SA045226

PATIENT
  Sex: Male

DRUGS (2)
  1. AMARYL [Suspect]
  2. JANUVIA [Suspect]

REACTIONS (4)
  - Gastric cancer [Recovering/Resolving]
  - Pain [Recovering/Resolving]
  - Hearing impaired [Unknown]
  - Visual impairment [Unknown]
